FAERS Safety Report 9536081 (Version 1)
Quarter: 2013Q2

REPORT INFORMATION
  Report Type: Spontaneous
  Country: US (occurrence: None)
  Receive Date: 20130419
  Receipt Date: 20130419
  Transmission Date: 20140414
  Serious: Yes (Other)
  Sender: FDA-Public Use
  Company Number: 2012-003990

PATIENT
  Age: 64 Year
  Sex: Female

DRUGS (5)
  1. FEMRING (ESTRADIOL ACETATE) VAGINAL DELIVERY SYSTEM, 0.1MG [Suspect]
     Indication: VULVOVAGINAL DRYNESS
     Route: 067
     Dates: end: 2011
  2. FEMRING (ESTRADIOL ACETATE) VAGINAL DELIVERY SYSTEM, .05MG [Suspect]
     Indication: VULVOVAGINAL DRYNESS
     Route: 067
     Dates: start: 2003
  3. THYROID PREPARATIONS [Concomitant]
  4. ANTIDEPRESSANTS [Concomitant]
  5. ALL OTHER THERAPEUTIC PRODUCTS [Concomitant]

REACTIONS (1)
  - Breast cancer [None]
